FAERS Safety Report 14945815 (Version 2)
Quarter: 2018Q2

REPORT INFORMATION
  Report Type: Spontaneous
  Country: TR (occurrence: TR)
  Receive Date: 20180529
  Receipt Date: 20180613
  Transmission Date: 20180711
  Serious: Yes (Life-Threatening)
  Sender: FDA-Public Use
  Company Number: PHHY2018TR007010

PATIENT
  Sex: Female

DRUGS (3)
  1. ACLASTA [Suspect]
     Active Substance: ZOLEDRONIC ACID
     Indication: OSTEOPOROSIS
     Dosage: UNK
     Route: 065
  2. DULOXX [Concomitant]
     Active Substance: DULOXETINE HYDROCHLORIDE
     Indication: PRODUCT USED FOR UNKNOWN INDICATION
     Route: 065
  3. MODIWAKE [Concomitant]
     Indication: PRODUCT USED FOR UNKNOWN INDICATION
     Route: 065

REACTIONS (8)
  - Fatigue [Unknown]
  - Cardiac disorder [Recovering/Resolving]
  - Pain [Recovered/Resolved]
  - Myalgia [Recovering/Resolving]
  - Feeling abnormal [Recovering/Resolving]
  - Feeling cold [Recovering/Resolving]
  - Bone pain [Recovering/Resolving]
  - Chills [Recovering/Resolving]
